FAERS Safety Report 4896940-X (Version None)
Quarter: 2006Q1

REPORT INFORMATION
  Report Type: 
  Country: None (occurrence: None)
  Receive Date: 20060127
  Receipt Date: 20060112
  Transmission Date: 20060701
  Serious: Yes (Hospitalization)
  Sender: FDA-Public Use
  Company Number: FR200601001980

PATIENT
  Age: 73 Year
  Sex: Male

DRUGS (2)
  1. OLANZAPINE [Suspect]
     Indication: HUNTINGTON'S CHOREA
     Dosage: 5MG, DAILY(1/D), ORAL
     Route: 048
     Dates: start: 20030101
  2. ZOLOFT [Concomitant]

REACTIONS (2)
  - OEDEMA [None]
  - PULMONARY EMBOLISM [None]
